FAERS Safety Report 9054547 (Version 1)
Quarter: 2013Q1

REPORT INFORMATION
  Report Type: Report from Study
  Country: TR (occurrence: TR)
  Receive Date: 20130208
  Receipt Date: 20130208
  Transmission Date: 20140127
  Serious: Yes (Death, Hospitalization, Other)
  Sender: FDA-Public Use
  Company Number: TR-BRISTOL-MYERS SQUIBB COMPANY-15703077

PATIENT
  Age: 84 Year
  Sex: Male

DRUGS (4)
  1. APIXABAN [Suspect]
     Indication: THROMBOSIS PROPHYLAXIS
     Route: 048
     Dates: start: 20101013, end: 20110425
  2. LISINOPRIL [Concomitant]
     Dates: start: 20090223
  3. CARVEDILOL [Concomitant]
     Dates: start: 20090223
  4. SPIRONOLACTONE + HCTZ [Concomitant]
     Dates: start: 20090223

REACTIONS (2)
  - Death [Fatal]
  - Gastrointestinal haemorrhage [Recovered/Resolved]
